FAERS Safety Report 8174554-6 (Version None)
Quarter: 2012Q1

REPORT INFORMATION
  Report Type: 
  Country: None (occurrence: None)
  Receive Date: 20120229
  Receipt Date: 20120223
  Transmission Date: 20120608
  Serious: Yes (Other)
  Sender: FDA-Public Use
  Company Number: GB-PFIZER INC-2012049018

PATIENT
  Age: 37 Year
  Sex: Female

DRUGS (10)
  1. INDOMETHACIN [Concomitant]
     Indication: PAIN
     Route: 048
  2. VENLAFAXINE HCL [Suspect]
     Indication: PAIN
  3. LYRICA [Concomitant]
     Indication: PAIN
     Dosage: 600 MG, UNK
     Route: 048
  4. VENLAFAXINE HCL [Suspect]
     Indication: DEPRESSION
  5. CYCLIZINE [Concomitant]
     Indication: PAIN
     Route: 048
  6. VENLAFAXINE HCL [Suspect]
     Indication: ANXIETY
     Dosage: 150 MG, UNK
     Route: 048
     Dates: start: 20110501, end: 20111101
  7. ONDANSETRON [Concomitant]
     Indication: PAIN
     Route: 048
  8. FENTANYL [Concomitant]
     Indication: PAIN
     Dosage: 25 UG, UNK
     Route: 062
  9. OXYCONTIN [Concomitant]
     Indication: PAIN
     Route: 048
  10. OXYCODONE HCL [Concomitant]
     Indication: PAIN
     Route: 048

REACTIONS (5)
  - ORAL PAIN [None]
  - DRY MOUTH [None]
  - DIPLOPIA [None]
  - TYPE 1 DIABETES MELLITUS [None]
  - BALANCE DISORDER [None]
